FAERS Safety Report 20857190 (Version 1)
Quarter: 2022Q2

REPORT INFORMATION
  Report Type: Spontaneous
  Country: US (occurrence: US)
  Receive Date: 20220520
  Receipt Date: 20220520
  Transmission Date: 20220721
  Serious: No
  Sender: FDA-Public Use
  Company Number: US-SANOFI-01106814

PATIENT
  Age: 76 Year
  Sex: Female

DRUGS (2)
  1. AUBAGIO [Suspect]
     Active Substance: TERIFLUNOMIDE
     Indication: Multiple sclerosis
     Dosage: 14 MG, QH
     Route: 048
     Dates: start: 2019
  2. CRANBERRY [Concomitant]
     Active Substance: CRANBERRY

REACTIONS (2)
  - Haemoglobin decreased [Unknown]
  - Abdominal wall wound [Unknown]

NARRATIVE: CASE EVENT DATE: 20200101
